FAERS Safety Report 12058791 (Version 1)
Quarter: 2016Q1

REPORT INFORMATION
  Report Type: Spontaneous
  Country: US (occurrence: None)
  Receive Date: 20160209
  Receipt Date: 20160209
  Transmission Date: 20160526
  Serious: Yes (Disabling, Other)
  Sender: FDA-Public Use
  Company Number: None

PATIENT
  Age: 56 Year
  Sex: Male
  Weight: 69.85 kg

DRUGS (12)
  1. SEROQUEL XR [Suspect]
     Active Substance: QUETIAPINE FUMARATE
     Indication: MENTAL DISORDER
     Dosage: 2 EA PER DAY BEDTIME MOUTH
     Route: 048
     Dates: start: 20080101
  2. HALDOL [Concomitant]
     Active Substance: HALOPERIDOL
  3. FLONASE [Concomitant]
     Active Substance: FLUTICASONE PROPIONATE
  4. PREPARATION H NOS [Concomitant]
     Active Substance: COCOA BUTTER\PETROLATUM\PHENYLEPHRINE HYDROCHLORIDE\PHENYLEPHRINE HYDROCHLORIDE OR MINERAL OIL
  5. HYDROCERIN CREAM [Concomitant]
  6. KLONOPIN [Concomitant]
     Active Substance: CLONAZEPAM
  7. OMEGA 3S [Concomitant]
  8. ARTIFICIAL TEARS [Concomitant]
     Active Substance: GLYCERIN\HYPROMELLOSES\POLYETHYLENE GLYCOL 400
  9. DEEP SEA MIST [Concomitant]
  10. VITAMIN D [Concomitant]
     Active Substance: CHOLECALCIFEROL
  11. LYDEX [Concomitant]
  12. SIMETHICONE (DIMETHICONE) [Concomitant]
     Active Substance: DIMETHICONE

REACTIONS (26)
  - Splenomegaly [None]
  - Varices oesophageal [None]
  - Diarrhoea [None]
  - Hepatomegaly [None]
  - Multiple allergies [None]
  - Cholelithiasis [None]
  - Dermatitis [None]
  - Upper-airway cough syndrome [None]
  - Varicose vein [None]
  - Thrombocytopenia [None]
  - Leukopenia [None]
  - Hyperchlorhydria [None]
  - Productive cough [None]
  - Hydrocele [None]
  - Flatulence [None]
  - Nausea [None]
  - Headache [None]
  - Varicose vein ruptured [None]
  - Arthropathy [None]
  - Cholestasis [None]
  - Alopecia [None]
  - Peripheral swelling [None]
  - Large intestine polyp [None]
  - Glucose tolerance impaired [None]
  - Haemorrhoids [None]
  - Vision blurred [None]

NARRATIVE: CASE EVENT DATE: 20101212
